FAERS Safety Report 5170302-2 (Version None)
Quarter: 2006Q4

REPORT INFORMATION
  Report Type: 
  Country: None (occurrence: None)
  Receive Date: 20061204
  Receipt Date: 20061124
  Transmission Date: 20070319
  Serious: Yes (Hospitalization)
  Sender: FDA-Public Use
  Company Number: GXKR2006ES07647

PATIENT
  Age: 60 Year
  Sex: Male

DRUGS (1)
  1. PARACETAMOL+CODEINE (NGX)(ACETAMINOPHEN (PARACETAMOL), CODEINE PHOSPHA [Suspect]
     Indication: NASOPHARYNGITIS
     Dosage: ORAL
     Route: 048

REACTIONS (3)
  - ALANINE AMINOTRANSFERASE INCREASED [None]
  - ASPARTATE AMINOTRANSFERASE INCREASED [None]
  - PANCREATITIS ACUTE [None]
